FAERS Safety Report 17763699 (Version 1)
Quarter: 2020Q2

REPORT INFORMATION
  Report Type: Spontaneous
  Country: FR (occurrence: FR)
  Receive Date: 20200510
  Receipt Date: 20200510
  Transmission Date: 20200714
  Serious: Yes (Other)
  Sender: FDA-Public Use
  Company Number: FR-CADILA HEALTHCARE LIMITED-FR-ZYDUS-024157

PATIENT

DRUGS (3)
  1. OXAZEPAM. [Suspect]
     Active Substance: OXAZEPAM
     Indication: WITHDRAWAL SYNDROME
     Dosage: 30 MILLIGRAM,(INTERVAL :1 DAYS)
     Route: 048
     Dates: start: 20180428, end: 20180502
  2. ZOPICLONE [Suspect]
     Active Substance: ZOPICLONE
     Indication: WITHDRAWAL SYNDROME
     Dosage: 1 DOSAGE FORM,(INTERVAL :1 DAYS)
     Route: 048
     Dates: start: 20180428, end: 20180502
  3. TRAMADOL. [Suspect]
     Active Substance: TRAMADOL
     Indication: ARTHRALGIA
     Dosage: 300 MILLIGRAM,(INTERVAL :1 DAYS)
     Route: 048
     Dates: start: 201801, end: 20180428

REACTIONS (2)
  - Drug withdrawal syndrome [Recovering/Resolving]
  - Intentional product misuse [Recovered/Resolved]

NARRATIVE: CASE EVENT DATE: 20180428
